FAERS Safety Report 20203456 (Version 1)
Quarter: 2021Q4

REPORT INFORMATION
  Report Type: Report from Study
  Country: FR (occurrence: FR)
  Receive Date: 20211218
  Receipt Date: 20211218
  Transmission Date: 20220303
  Serious: Yes (Hospitalization)
  Sender: FDA-Public Use
  Company Number: FR-SERVIER-S21013609

PATIENT

DRUGS (10)
  1. PEGASPARGASE [Suspect]
     Active Substance: PEGASPARGASE
     Indication: Acute lymphocytic leukaemia
     Dosage: 1470 IU, D4 AND D43
     Route: 042
     Dates: start: 20180316, end: 20180427
  2. CYTARABINE [Suspect]
     Active Substance: CYTARABINE
     Indication: Acute lymphocytic leukaemia
     Dosage: 25 MG (D4 AND D32)
     Route: 037
     Dates: start: 20180316, end: 20180416
  3. CYTARABINE [Suspect]
     Active Substance: CYTARABINE
     Dosage: 44.4 MG, D39 TO D42
     Route: 042
     Dates: start: 20180423, end: 20180426
  4. TN UNSPECIFIED [Concomitant]
     Indication: Acute lymphocytic leukaemia
     Dosage: 592 MG, D29
     Route: 065
     Dates: start: 20180313, end: 20180313
  5. TN UNSPECIFIED [Concomitant]
     Indication: Acute lymphocytic leukaemia
     Dosage: 14.7 MG, D1, D8, D15
     Route: 042
     Dates: start: 20180313, end: 20180327
  6. TN UNSPECIFIED [Concomitant]
     Indication: Acute lymphocytic leukaemia
     Dosage: 6 MG, D1 TO D7, D15 TO D21
     Route: 048
     Dates: start: 20180313, end: 20180402
  7. TN UNSPECIFIED [Concomitant]
     Indication: Acute lymphocytic leukaemia
     Dosage: 0.8 MG, D1, D8 AND D15
     Route: 042
     Dates: start: 20180313, end: 20180504
  8. TN UNSPECIFIED [Concomitant]
     Indication: Acute lymphocytic leukaemia
     Dosage: 10 MG, D4 AND D32
     Route: 037
     Dates: start: 20180316, end: 20180416
  9. TN UNSPECIFIED [Concomitant]
     Indication: Acute lymphocytic leukaemia
     Dosage: 12.5 MG, D4 AND D32
     Route: 037
     Dates: start: 20180316, end: 20180416
  10. TN UNSPECIFIED [Concomitant]
     Indication: Acute lymphocytic leukaemia
     Dosage: 35 MG, D29 TO D42
     Route: 048
     Dates: start: 20180413, end: 20180426

REACTIONS (1)
  - Febrile bone marrow aplasia [Recovered/Resolved]

NARRATIVE: CASE EVENT DATE: 20180429
